FAERS Safety Report 9022263 (Version 1)
Quarter: 2013Q1

REPORT INFORMATION
  Report Type: Spontaneous
  Country: US (occurrence: US)
  Receive Date: 20130118
  Receipt Date: 20130118
  Transmission Date: 20140127
  Serious: Yes (Other)
  Sender: FDA-Public Use
  Company Number: PHEH2013US001362

PATIENT
  Sex: Female

DRUGS (6)
  1. EXELON PATCH [Suspect]
     Route: 062
  2. LIDODERM [Concomitant]
  3. NAMENDA [Concomitant]
  4. EVISTA [Concomitant]
  5. GRALISE [Concomitant]
  6. CENTRUM [Concomitant]

REACTIONS (2)
  - Pelvic fracture [Unknown]
  - Upper limb fracture [Unknown]
